FAERS Safety Report 8105601-5 (Version None)
Quarter: 2012Q1

REPORT INFORMATION
  Report Type: 
  Country: None (occurrence: None)
  Receive Date: 20120201
  Receipt Date: 20111229
  Transmission Date: 20120608
  Serious: Yes (Other)
  Sender: FDA-Public Use
  Company Number: AT-ROCHE-1028038

PATIENT
  Age: 15 Year
  Sex: Male

DRUGS (3)
  1. DOPAMINE HCL [Concomitant]
  2. SOMATROPIN RDNA [Suspect]
     Indication: GROWTH HORMONE DEFICIENCY
     Route: 058
  3. INSULIN [Concomitant]

REACTIONS (2)
  - OESOPHAGEAL ACHALASIA [None]
  - WEIGHT DECREASED [None]
